FAERS Safety Report 16197605 (Version 1)
Quarter: 2019Q2

REPORT INFORMATION
  Report Type: Spontaneous
  Country: US (occurrence: US)
  Receive Date: 20190414
  Receipt Date: 20190414
  Transmission Date: 20190711
  Serious: No
  Sender: FDA-Public Use
  Company Number: None

PATIENT
  Age: 27 Year
  Sex: Male
  Weight: 63 kg

DRUGS (5)
  1. NUTRAFOL [Concomitant]
  2. HUMALOG [Concomitant]
     Active Substance: INSULIN LISPRO
  3. RHOFADE [Suspect]
     Active Substance: OXYMETAZOLINE HYDROCHLORIDE
     Indication: ROSACEA
     Dates: start: 20190411, end: 20190412
  4. LYSINE [Concomitant]
     Active Substance: LYSINE
  5. HAIROMEGA DHT [Concomitant]

REACTIONS (2)
  - Application site reaction [None]
  - Chemical burn [None]

NARRATIVE: CASE EVENT DATE: 20190411
